FAERS Safety Report 20136592 (Version 1)
Quarter: 2021Q4

REPORT INFORMATION
  Report Type: Spontaneous
  Country: US (occurrence: None)
  Receive Date: 20211201
  Receipt Date: 20211201
  Transmission Date: 20220303
  Serious: No
  Sender: FDA-Public Use
  Company Number: None

PATIENT
  Age: 7 Year
  Sex: Male
  Weight: 25 kg

DRUGS (4)
  1. LEVODOPA [Suspect]
     Active Substance: LEVODOPA
     Indication: Blood growth hormone
     Dosage: OTHER FREQUENCY : ONCE;?
     Route: 048
  2. CLONIDINE [Concomitant]
     Active Substance: CLONIDINE
     Dates: start: 20211116, end: 20211116
  3. cortrosyn 25microgram [Concomitant]
     Dates: start: 20211116, end: 20211116
  4. SODIUM CHLORIDE [Concomitant]
     Active Substance: SODIUM CHLORIDE
     Dates: start: 20211116, end: 20211116

REACTIONS (2)
  - Blood glucose decreased [None]
  - Vomiting [None]

NARRATIVE: CASE EVENT DATE: 20211116
